FAERS Safety Report 8585427-9 (Version None)
Quarter: 2012Q3

REPORT INFORMATION
  Report Type: 
  Country: None (occurrence: None)
  Receive Date: 20120810
  Receipt Date: 20120809
  Transmission Date: 20120928
  Serious: No
  Sender: FDA-Public Use
  Company Number: US-PFIZER INC-2012194850

PATIENT
  Age: 40 Year
  Sex: Female
  Weight: 58 kg

DRUGS (4)
  1. GEODON [Suspect]
     Indication: PARANOIA
     Dosage: 80 MG, 1X/DAY
     Route: 048
     Dates: start: 20070101, end: 20080101
  2. GEODON [Suspect]
     Dosage: 80 MG, 1X/DAY
     Route: 048
     Dates: start: 20090101, end: 20110401
  3. GEODON [Suspect]
     Dosage: 40 MG, 1X/DAY
     Route: 048
     Dates: start: 20110401
  4. XANAX [Concomitant]
     Dosage: 0.25 MG, UNK (HALF OF 0.5 MG)

REACTIONS (2)
  - RESTLESSNESS [None]
  - FEELING ABNORMAL [None]
